FAERS Safety Report 6761070-9 (Version None)
Quarter: 2010Q2

REPORT INFORMATION
  Report Type: 
  Country: None (occurrence: None)
  Receive Date: 20100608
  Receipt Date: 20100528
  Transmission Date: 20101027
  Serious: Yes (Congenital Anomaly, Other)
  Sender: FDA-Public Use
  Company Number: B0659165B

PATIENT

DRUGS (1)
  1. IMIGRAN [Suspect]
     Indication: MIGRAINE
     Dates: start: 20090603

REACTIONS (4)
  - CONGENITAL MUSCULOSKELETAL ANOMALY [None]
  - CYTOGENETIC ABNORMALITY [None]
  - DRUG EXPOSURE DURING PREGNANCY [None]
  - MATERNAL DRUGS AFFECTING FOETUS [None]
